FAERS Safety Report 6688067-1 (Version None)
Quarter: 2010Q2

REPORT INFORMATION
  Report Type: 
  Country: None (occurrence: None)
  Receive Date: 20100420
  Receipt Date: 20100416
  Transmission Date: 20101027
  Serious: Yes (Death, Hospitalization)
  Sender: FDA-Public Use
  Company Number: PHHY2010DE09022

PATIENT
  Weight: 69 kg

DRUGS (8)
  1. EXELON [Suspect]
     Indication: DEMENTIA ALZHEIMER'S TYPE
     Dosage: 4.6 MG, QD
     Route: 062
     Dates: start: 20091006, end: 20091022
  2. LEVODOPA [Concomitant]
     Indication: PARKINSON'S DISEASE
  3. REQUIP [Concomitant]
     Indication: PARKINSON'S DISEASE
  4. OMEPRAZOLE [Concomitant]
     Indication: PROPHYLAXIS
     Dosage: 1X1
     Route: 048
     Dates: start: 20091001
  5. BISOPROLOL [Concomitant]
     Indication: CARDIAC FAILURE
     Dosage: 1X1
     Route: 048
     Dates: start: 20091001
  6. FUROSEMID [Concomitant]
     Indication: CARDIAC FAILURE
     Dosage: 1.5-0.5-0
     Route: 048
     Dates: start: 20091001
  7. DIGITOXIN TAB [Concomitant]
     Indication: CARDIAC FAILURE
     Dosage: 1X1
     Route: 048
     Dates: start: 20091001
  8. L-DOPA [Concomitant]
     Indication: PARKINSON'S DISEASE
     Dosage: 3X1
     Route: 048
     Dates: start: 20090723, end: 20091012

REACTIONS (2)
  - AKINESIA [None]
  - PNEUMONIA ASPIRATION [None]
